FAERS Safety Report 7914189-0 (Version None)
Quarter: 2011Q4

REPORT INFORMATION
  Report Type: 
  Country: None (occurrence: None)
  Receive Date: 20111115
  Receipt Date: 20111115
  Transmission Date: 20120403
  Serious: Yes (Other)
  Sender: FDA-Public Use
  Company Number: None

PATIENT
  Age: 53 Year
  Sex: Female
  Weight: 93.893 kg

DRUGS (1)
  1. PROPOFOL [Suspect]
     Indication: COLONOSCOPY
     Dates: start: 20111114, end: 20111114

REACTIONS (2)
  - CHILLS [None]
  - PYREXIA [None]
